FAERS Safety Report 6312726-3 (Version None)
Quarter: 2009Q3

REPORT INFORMATION
  Report Type: 
  Country: None (occurrence: None)
  Receive Date: 20090818
  Receipt Date: 20090804
  Transmission Date: 20100115
  Serious: Yes (Other)
  Sender: FDA-Public Use
  Company Number: BR-RANBAXY-2009RR-26076

PATIENT
  Age: 56 Year
  Sex: Male

DRUGS (2)
  1. FLUOXETINE [Suspect]
     Indication: GENERALISED ANXIETY DISORDER
     Dosage: 20 MG, QD
  2. FLUOXETINE [Suspect]
     Indication: MAJOR DEPRESSION
     Dosage: 40 MG, QD

REACTIONS (1)
  - TRISMUS [None]
